FAERS Safety Report 8978351 (Version 1)
Quarter: 2012Q4

REPORT INFORMATION
  Report Type: Spontaneous
  Country: US (occurrence: None)
  Receive Date: 20121218
  Receipt Date: 20121218
  Transmission Date: 20130627
  Serious: Yes (Other)
  Sender: FDA-Public Use
  Company Number: None

PATIENT
  Age: 56 Year
  Sex: Female
  Weight: 52.16 kg

DRUGS (2)
  1. ACETAMINOPHEN/CODEINE [Suspect]
     Indication: PROCEDURAL PAIN
     Dosage: 1 tablet every 4 hr. oral
     Route: 048
     Dates: start: 20121026
  2. TRAMADOL HCL [Suspect]
     Indication: PROCEDURAL PAIN
     Dosage: 1 tablet every 4 hr. oral
     Route: 048
     Dates: start: 20121102

REACTIONS (8)
  - Speech disorder [None]
  - Eye disorder [None]
  - Migraine [None]
  - Dizziness [None]
  - Asthenia [None]
  - Pain [None]
  - Vomiting [None]
  - Influenza [None]
